FAERS Safety Report 18293597 (Version 3)
Quarter: 2020Q4

REPORT INFORMATION
  Report Type: Spontaneous
  Country: US (occurrence: US)
  Receive Date: 20200922
  Receipt Date: 20201028
  Transmission Date: 20210113
  Serious: No
  Sender: FDA-Public Use
  Company Number: US-ASTRAZENECA-2020SF14417

PATIENT
  Age: 72 Year
  Sex: Male
  Weight: 81.6 kg

DRUGS (5)
  1. BYDUREON [Suspect]
     Active Substance: EXENATIDE
     Indication: DIABETES MELLITUS
     Route: 058
  2. ASPIRIN. [Concomitant]
     Active Substance: ASPIRIN
     Dosage: 81.0MG UNKNOWN
  3. XARELTO [Concomitant]
     Active Substance: RIVAROXABAN
     Indication: IMPLANTABLE DEFIBRILLATOR INSERTION
  4. GLIMIPIRIDE [Concomitant]
     Active Substance: GLIMEPIRIDE
     Dosage: 4.0MG UNKNOWN
  5. CARVIDILOL [Concomitant]
     Dosage: 12.5MG UNKNOWN

REACTIONS (7)
  - Blood glucose increased [Unknown]
  - Drug dose omission by device [Unknown]
  - Haemorrhage [Unknown]
  - Incorrect dose administered by device [Unknown]
  - Product dispensing error [Unknown]
  - Incorrect dose administered [Unknown]
  - Device issue [Unknown]
